FAERS Safety Report 6539835-8 (Version None)
Quarter: 2010Q1

REPORT INFORMATION
  Report Type: 
  Country: None (occurrence: None)
  Receive Date: 20100115
  Receipt Date: 20100107
  Transmission Date: 20100710
  Serious: Yes (Hospitalization)
  Sender: FDA-Public Use
  Company Number: US-JNJFOC-20100101982

PATIENT
  Age: 20 Year
  Sex: Male

DRUGS (1)
  1. ULTRAM [Suspect]
     Indication: DRUG USE FOR UNKNOWN INDICATION
     Route: 048

REACTIONS (4)
  - CONVULSION [None]
  - OVERDOSE [None]
  - SUICIDE ATTEMPT [None]
  - TACHYCARDIA [None]
